FAERS Safety Report 15279069 (Version 2)
Quarter: 2018Q3

REPORT INFORMATION
  Report Type: Report from Study
  Country: None (occurrence: PR)
  Receive Date: 20180815
  Receipt Date: 20180817
  Transmission Date: 20181010
  Serious: Yes (Hospitalization)
  Sender: FDA-Public Use
  Company Number: PR-ABBVIE-18S-131-2451243-00

PATIENT
  Sex: Female

DRUGS (1)
  1. DUOPA [Suspect]
     Active Substance: CARBIDOPA\LEVODOPA
     Indication: PARKINSON^S DISEASE
     Route: 050
     Dates: start: 20180809

REACTIONS (2)
  - Lethargy [Unknown]
  - Dehydration [Unknown]

NARRATIVE: CASE EVENT DATE: 20180809
